FAERS Safety Report 9296759 (Version 2)
Quarter: 2013Q2

REPORT INFORMATION
  Report Type: Spontaneous
  Country: US (occurrence: US)
  Receive Date: 20130517
  Receipt Date: 20130611
  Transmission Date: 20140414
  Serious: Yes (Other)
  Sender: FDA-Public Use
  Company Number: CHPA2013US008156

PATIENT
  Age: 88 Year
  Sex: Female

DRUGS (2)
  1. THERAFLU UNKNOWN [Suspect]
     Indication: OROPHARYNGEAL PAIN
     Dosage: 0.5 -1 TSP, UNK
     Route: 048
  2. THERAFLU UNKNOWN [Suspect]
     Indication: INFLUENZA

REACTIONS (14)
  - Cataract [Recovering/Resolving]
  - Post procedural complication [Not Recovered/Not Resolved]
  - Lumbar spinal stenosis [Not Recovered/Not Resolved]
  - Hip fracture [Recovered/Resolved]
  - Ligament sprain [Recovered/Resolved]
  - Carpal tunnel syndrome [Unknown]
  - Visual acuity reduced [Recovering/Resolving]
  - Activities of daily living impaired [Not Recovered/Not Resolved]
  - Gait disturbance [Not Recovered/Not Resolved]
  - Oropharyngeal pain [Unknown]
  - Influenza [Unknown]
  - Lacrimation increased [Unknown]
  - Expired drug administered [Unknown]
  - Underdose [Unknown]
